FAERS Safety Report 11541489 (Version 1)
Quarter: 2015Q3

REPORT INFORMATION
  Report Type: Report from Study
  Country: US (occurrence: US)
  Receive Date: 20150923
  Receipt Date: 20150923
  Transmission Date: 20151125
  Serious: Yes (Death, Hospitalization, Other)
  Sender: FDA-Public Use
  Company Number: US-KADMON PHARMACEUTICALS, LLC-KAD201509-003225

PATIENT
  Age: 65 Year
  Sex: Male
  Weight: 71.21 kg

DRUGS (3)
  1. VIEKIRA PAK [Suspect]
     Active Substance: DASABUVIR\OMBITASVIR\PARITAPREVIR\RITONAVIR
     Indication: HEPATITIS C
     Dosage: TABLET
     Route: 048
     Dates: start: 20150426, end: 20150721
  2. RIBAVIRIN. [Suspect]
     Active Substance: RIBAVIRIN
     Indication: HEPATITIS C
     Dosage: TABLET
     Route: 048
     Dates: start: 20150426, end: 20150721
  3. ELAVIL [Concomitant]
     Active Substance: AMITRIPTYLINE HYDROCHLORIDE
     Indication: DEPRESSION
     Route: 048
     Dates: end: 20150713

REACTIONS (7)
  - Blood bilirubin increased [Unknown]
  - Blood alkaline phosphatase increased [Recovered/Resolved]
  - Aspartate aminotransferase increased [Recovered/Resolved]
  - Sepsis [Fatal]
  - Hepatocellular carcinoma [Unknown]
  - Procedural complication [Unknown]
  - Ammonia increased [Unknown]

NARRATIVE: CASE EVENT DATE: 2015
